FAERS Safety Report 23160499 (Version 1)
Quarter: 2023Q4

REPORT INFORMATION
  Report Type: Spontaneous
  Country: FR (occurrence: FR)
  Receive Date: 20231108
  Receipt Date: 20231108
  Transmission Date: 20240110
  Serious: Yes (Other)
  Sender: FDA-Public Use
  Company Number: FR-PFIZER INC-202300161963

PATIENT
  Sex: Male

DRUGS (1)
  1. NEORAL [Interacting]
     Active Substance: CYCLOSPORINE
     Indication: Immunosuppressant drug therapy
     Dosage: 240 MG, QD
     Route: 065

REACTIONS (4)
  - Encephalopathy [Unknown]
  - Coma [Unknown]
  - Drug interaction [Unknown]
  - Immunosuppressant drug level increased [Unknown]
